FAERS Safety Report 13774920 (Version 4)
Quarter: 2017Q4

REPORT INFORMATION
  Report Type: Spontaneous
  Country: JP (occurrence: JP)
  Receive Date: 20170720
  Receipt Date: 20171226
  Transmission Date: 20180320
  Serious: Yes (Death, Life-Threatening, Hospitalization)
  Sender: FDA-Public Use
  Company Number: PHJP2017JP023131

PATIENT
  Age: 48 Year
  Sex: Male
  Weight: 71 kg

DRUGS (7)
  1. TENELIA [Concomitant]
     Active Substance: TENELIGLIPTIN
     Indication: HYPERGLYCAEMIA
     Dosage: 20 MG, QD
     Route: 048
     Dates: start: 20170125
  2. DAIPHEN [Concomitant]
     Active Substance: SULFAMETHOXAZOLE\TRIMETHOPRIM
     Indication: PROPHYLAXIS
     Dosage: 1 DF, QD
     Route: 048
     Dates: start: 20161222, end: 20170227
  3. FAMOTIDINE. [Concomitant]
     Active Substance: FAMOTIDINE
     Indication: PROPHYLAXIS
     Dosage: 20 MG, QD
     Route: 048
     Dates: start: 20170221, end: 20170426
  4. WARFARIN [Concomitant]
     Active Substance: WARFARIN
     Indication: ANTIPHOSPHOLIPID SYNDROME
     Dosage: 3 MG, QD
     Route: 048
     Dates: start: 20170222, end: 20170426
  5. PREDONINE [Concomitant]
     Active Substance: PREDNISOLONE
     Indication: IMMUNE THROMBOCYTOPENIC PURPURA
     Dosage: 15 MG, QD
     Route: 048
     Dates: start: 20161221
  6. NEXIUM [Concomitant]
     Active Substance: ESOMEPRAZOLE MAGNESIUM
     Indication: PROPHYLAXIS
     Dosage: 20 MG, QD
     Route: 048
     Dates: start: 20161217, end: 20170220
  7. REVOLADE TAB [Suspect]
     Active Substance: ELTROMBOPAG
     Indication: IMMUNE THROMBOCYTOPENIC PURPURA
     Dosage: 50 MG, QD
     Route: 048
     Dates: start: 20161226

REACTIONS (4)
  - Ischaemic cardiomyopathy [Fatal]
  - Dyspnoea [Fatal]
  - Nephropathy [Fatal]
  - Haemodynamic instability [Fatal]

NARRATIVE: CASE EVENT DATE: 20170215
